FAERS Safety Report 9027796 (Version 1)
Quarter: 2013Q1

REPORT INFORMATION
  Report Type: Report from Study
  Country: CA (occurrence: FR)
  Receive Date: 20130124
  Receipt Date: 20130124
  Transmission Date: 20140127
  Serious: Yes (Other)
  Sender: FDA-Public Use
  Company Number: CA-JNJFOC-20130107705

PATIENT
  Sex: Female
  Weight: 52 kg

DRUGS (4)
  1. REMICADE [Suspect]
     Indication: CROHN^S DISEASE
     Route: 042
     Dates: start: 20110324
  2. REMICADE [Suspect]
     Indication: CROHN^S DISEASE
     Route: 042
  3. REMICADE [Suspect]
     Indication: CROHN^S DISEASE
     Dosage: 11TH INFUSION
     Route: 042
     Dates: start: 20121115, end: 20121115
  4. IMURAN [Concomitant]
     Route: 048
     Dates: start: 201103

REACTIONS (1)
  - Lupus-like syndrome [Not Recovered/Not Resolved]
